FAERS Safety Report 15185624 (Version 3)
Quarter: 2018Q3

REPORT INFORMATION
  Report Type: Spontaneous
  Country: US (occurrence: US)
  Receive Date: 20180723
  Receipt Date: 20180905
  Transmission Date: 20181010
  Serious: No
  Sender: FDA-Public Use
  Company Number: US-B.I. PHARMACEUTICALS,INC./RIDGEFIELD-2018-BI-036885

PATIENT
  Age: 66 Year
  Sex: Female
  Weight: 48 kg

DRUGS (3)
  1. MORPHINE [Concomitant]
     Active Substance: MORPHINE
     Indication: CANCER PAIN
     Dosage: ONE TABLET TWICE A DAY;  FORM STRENGTH: 15 MG; FORMULATION: TABLET
     Route: 048
     Dates: start: 201805
  2. GILOTRIF [Suspect]
     Active Substance: AFATINIB
     Indication: NON-SMALL CELL LUNG CANCER METASTATIC
     Dosage: ADMINISTRATION CORRECT? YES  ACTION(S) TAKEN WITH PRODUCT: DRUG WITHDRAWN
     Route: 048
     Dates: start: 20180516, end: 20180702
  3. ZOMETA [Concomitant]
     Active Substance: ZOLEDRONIC ACID
     Indication: PRODUCT USED FOR UNKNOWN INDICATION
     Route: 042
     Dates: start: 20180604

REACTIONS (11)
  - Tongue discomfort [Recovered/Resolved]
  - Disturbance in attention [Not Recovered/Not Resolved]
  - Ageusia [Recovered/Resolved]
  - Vomiting [Recovered/Resolved]
  - Diarrhoea [Not Recovered/Not Resolved]
  - Abnormal loss of weight [Not Recovered/Not Resolved]
  - Diarrhoea [Not Recovered/Not Resolved]
  - Blood potassium decreased [Recovered/Resolved]
  - Weight decreased [Not Recovered/Not Resolved]
  - Tongue erythema [Recovered/Resolved]
  - Dry skin [Not Recovered/Not Resolved]

NARRATIVE: CASE EVENT DATE: 201805
